FAERS Safety Report 4730360-3 (Version None)
Quarter: 2005Q3

REPORT INFORMATION
  Report Type: 
  Country: None (occurrence: None)
  Receive Date: 20050801
  Receipt Date: 20050627
  Transmission Date: 20060218
  Serious: Yes (Disabling)
  Sender: FDA-Public Use
  Company Number: IE-MERCK-0506GBR00193

PATIENT
  Age: 40 Year
  Sex: Female

DRUGS (3)
  1. FOSAMAX [Suspect]
     Indication: OSTEOPOROSIS
     Route: 048
     Dates: start: 20050524, end: 20050606
  2. MEDROXYPROGESTERONE ACETATE [Concomitant]
     Route: 065
  3. ESOMEPRAZOLE MAGNESIUM [Concomitant]
     Route: 065

REACTIONS (3)
  - GAIT DISTURBANCE [None]
  - HYPERTONIA [None]
  - OSTEOARTHRITIS [None]
